FAERS Safety Report 5599415-8 (Version None)
Quarter: 2008Q1

REPORT INFORMATION
  Report Type: 
  Country: None (occurrence: None)
  Receive Date: 20080122
  Receipt Date: 20080110
  Transmission Date: 20080703
  Serious: Yes (Hospitalization)
  Sender: FDA-Public Use
  Company Number: JP-PFIZER INC-2008003693

PATIENT
  Age: 74 Year
  Sex: Male

DRUGS (1)
  1. MEDROL [Suspect]
     Dosage: DAILY DOSE:4MG

REACTIONS (2)
  - CYTOMEGALOVIRUS ENTEROCOLITIS [None]
  - MALLORY-WEISS SYNDROME [None]
